FAERS Safety Report 20628475 (Version 1)
Quarter: 2022Q1

REPORT INFORMATION
  Report Type: Spontaneous
  Country: US (occurrence: None)
  Receive Date: 20220323
  Receipt Date: 20220323
  Transmission Date: 20220423
  Serious: Yes (Hospitalization)
  Sender: FDA-Public Use
  Company Number: None

PATIENT
  Age: 50 Year
  Sex: Female
  Weight: 74.25 kg

DRUGS (6)
  1. DEXAMETHASONE SODIUM PHOSPHATE [Suspect]
     Active Substance: DEXAMETHASONE SODIUM PHOSPHATE
     Indication: Pain
     Dosage: OTHER QUANTITY : 1 INJECTION(S);?OTHER ROUTE : INJECTION;?
     Route: 050
     Dates: start: 20220322, end: 20220322
  2. LISINOPRIL [Concomitant]
     Active Substance: LISINOPRIL
  3. TOPIRAMATE [Concomitant]
     Active Substance: TOPIRAMATE
  4. VITAMIN C [Concomitant]
     Active Substance: ASCORBIC ACID
  5. CALCIUM [Concomitant]
     Active Substance: CALCIUM
  6. VITAMIN D NOS [Concomitant]
     Active Substance: VITAMIN D NOS

REACTIONS (3)
  - Paraesthesia [None]
  - Blood pressure increased [None]
  - Head discomfort [None]

NARRATIVE: CASE EVENT DATE: 20220322
